FAERS Safety Report 9401160 (Version 1)
Quarter: 2013Q3

REPORT INFORMATION
  Report Type: Spontaneous
  Country: JP (occurrence: JP)
  Receive Date: 20130715
  Receipt Date: 20130715
  Transmission Date: 20140515
  Serious: Yes (Hospitalization)
  Sender: FDA-Public Use
  Company Number: JP-BAYER-2013-084904

PATIENT
  Age: 76 Year
  Sex: Female
  Weight: 68 kg

DRUGS (14)
  1. XARELTO [Suspect]
     Indication: ATRIAL FIBRILLATION
     Dosage: 10 MG, QD
     Route: 048
     Dates: start: 20130513, end: 20130527
  2. XARELTO [Interacting]
     Indication: CEREBROVASCULAR ACCIDENT PROPHYLAXIS
  3. BAYASPIRIN [Interacting]
     Dosage: 100 MG, QD
     Route: 048
  4. LASIX [Concomitant]
     Route: 048
  5. LASIX [Concomitant]
     Dosage: UNK
  6. ATORVASTATIN [Concomitant]
     Dosage: UNK
     Route: 048
  7. CILNIDIPINE [Concomitant]
     Dosage: UNK
     Route: 048
  8. MAGLAX [Concomitant]
     Route: 048
  9. BROTIZOLAM [Concomitant]
     Dosage: UNK
     Route: 048
  10. FEMARA [Concomitant]
     Dosage: UNK
     Route: 048
  11. LAXOBERON [Concomitant]
     Route: 048
  12. FESIN [Concomitant]
     Indication: ANAEMIA
     Dosage: 80 MG, QD
     Dates: start: 20130420, end: 20130513
  13. MYOCOR [Concomitant]
  14. UNFRACTIONATED HEPARIN [Concomitant]
     Dosage: UNK
     Dates: end: 20130513

REACTIONS (3)
  - Occult blood positive [Recovering/Resolving]
  - Haemoglobin decreased [Recovering/Resolving]
  - Drug interaction [None]
